FAERS Safety Report 16642848 (Version 1)
Quarter: 2019Q3

REPORT INFORMATION
  Report Type: Spontaneous
  Country: US (occurrence: US)
  Receive Date: 20190728
  Receipt Date: 20190728
  Transmission Date: 20191004
  Serious: Yes (Hospitalization)
  Sender: FDA-Public Use
  Company Number: None

PATIENT
  Age: 83 Year
  Sex: Male

DRUGS (2)
  1. MIDAZOLAM [Suspect]
     Active Substance: MIDAZOLAM HYDROCHLORIDE
  2. FENTANYL. [Suspect]
     Active Substance: FENTANYL

REACTIONS (2)
  - Supraventricular tachycardia [None]
  - Hypotension [None]

NARRATIVE: CASE EVENT DATE: 20190404
